FAERS Safety Report 16745532 (Version 1)
Quarter: 2019Q3

REPORT INFORMATION
  Report Type: Report from Study
  Country: IT (occurrence: IT)
  Receive Date: 20190827
  Receipt Date: 20190827
  Transmission Date: 20191005
  Serious: Yes (Hospitalization)
  Sender: FDA-Public Use
  Company Number: IT-PFIZER INC-2019358464

PATIENT
  Age: 82 Year
  Sex: Male

DRUGS (3)
  1. TAVOR (LORAZEPAM) [Suspect]
     Active Substance: LORAZEPAM
     Indication: COGNITIVE DISORDER
     Dosage: 1 MG, 1X/DAY
     Route: 048
     Dates: start: 20190530, end: 20190602
  2. HALOPERIDOL. [Suspect]
     Active Substance: HALOPERIDOL
     Indication: COGNITIVE DISORDER
     Dosage: 10 GTT, 1X/DAY
     Dates: start: 20190530, end: 20190602
  3. TRITTICO [Suspect]
     Active Substance: TRAZODONE HYDROCHLORIDE
     Indication: DEPRESSION
     Dosage: 75 MG, 1X/DAY
     Route: 048
     Dates: start: 20190530, end: 20190602

REACTIONS (1)
  - Hypokinesia [Recovered/Resolved with Sequelae]

NARRATIVE: CASE EVENT DATE: 20190602
